FAERS Safety Report 4826961-4 (Version None)
Quarter: 2005Q4

REPORT INFORMATION
  Report Type: 
  Country: None (occurrence: None)
  Receive Date: 20051114
  Receipt Date: 20051103
  Transmission Date: 20060501
  Serious: Yes (Other)
  Sender: FDA-Public Use
  Company Number: US-JNJFOC-20040803918

PATIENT
  Sex: Male
  Weight: 65.32 kg

DRUGS (2)
  1. CHILDREN'S MOTRIN COLD BERRY ORAL [Suspect]
  2. CHILDREN'S MOTRIN COLD BERRY ORAL [Suspect]
     Indication: PHARYNGOLARYNGEAL PAIN

REACTIONS (3)
  - BODY TEMPERATURE INCREASED [None]
  - GOITRE [None]
  - HYPERSENSITIVITY [None]
